FAERS Safety Report 7810732-0 (Version None)
Quarter: 2011Q4

REPORT INFORMATION
  Report Type: 
  Country: None (occurrence: None)
  Receive Date: 20111006
  Receipt Date: 20110926
  Transmission Date: 20120403
  Serious: Yes (Hospitalization)
  Sender: FDA-Public Use
  Company Number: 1058276

PATIENT
  Age: 70 Year
  Sex: Female

DRUGS (3)
  1. (PHENYTOIN) [Concomitant]
  2. CEFEPIME HYDROCHLORIDE [Suspect]
     Indication: PNEUMONIA
     Dosage: 2 G/DAY,
  3. CEFEPIME HYDROCHLORIDE [Suspect]
     Indication: FEBRILE NEUTROPENIA
     Dosage: 2 G/DAY,

REACTIONS (6)
  - AGITATION [None]
  - METABOLIC DISORDER [None]
  - DYSARTHRIA [None]
  - STATUS EPILEPTICUS [None]
  - MENTAL STATUS CHANGES [None]
  - NEUROTOXICITY [None]
